FAERS Safety Report 8616560 (Version 3)
Quarter: 2014Q1

REPORT INFORMATION
  Report Type: Spontaneous
  Country: US (occurrence: US)
  Receive Date: 20120615
  Receipt Date: 20140129
  Transmission Date: 20141002
  Serious: No
  Sender: FDA-Public Use
  Company Number: US-ASTRAZENECA-2012SE34422

PATIENT
  Age: 56 Year
  Sex: Female
  Weight: 103.9 kg

DRUGS (7)
  1. NEXIUM [Suspect]
     Indication: GASTROOESOPHAGEAL REFLUX DISEASE
     Dosage: THREE TIMES A DAY
     Route: 048
     Dates: start: 200804
  2. TUMS [Concomitant]
     Dosage: AS NEEDED
  3. ROLAIDS [Concomitant]
  4. AMLODIPINE BESYLATE [Concomitant]
  5. TRAMADOL [Concomitant]
  6. TYLENOL W/CODEINE [Concomitant]
  7. CAL-MAG [Concomitant]

REACTIONS (5)
  - Osteoporosis [Unknown]
  - Multiple fractures [Unknown]
  - Polyarthritis [Unknown]
  - Arthropathy [Unknown]
  - Chronic obstructive pulmonary disease [Unknown]
